FAERS Safety Report 5332364-9 (Version None)
Quarter: 2007Q2

REPORT INFORMATION
  Report Type: 
  Country: None (occurrence: None)
  Receive Date: 20070523
  Receipt Date: 20070522
  Transmission Date: 20071010
  Serious: Yes (Other)
  Sender: FDA-Public Use
  Company Number: A0652425A

PATIENT
  Age: 61 Year
  Sex: Female

DRUGS (6)
  1. AVANDIA [Suspect]
     Dosage: 8MG PER DAY
     Route: 048
  2. LISINOPRIL [Concomitant]
  3. LIPITOR [Concomitant]
  4. AMARYL [Concomitant]
  5. COREG [Concomitant]
  6. PLAVIX [Concomitant]

REACTIONS (2)
  - CHEST PAIN [None]
  - MYOCARDIAL INFARCTION [None]
